FAERS Safety Report 8983851 (Version 1)
Quarter: 2012Q4

REPORT INFORMATION
  Report Type: 
  Country: AR (occurrence: AR)
  Receive Date: 20121224
  Receipt Date: 20121224
  Transmission Date: 20130627
  Serious: Yes (Hospitalization, Other)
  Sender: FDA-Public Use
  Company Number: AR-ROCHE-1170891

PATIENT
  Age: 70 Year
  Sex: Female

DRUGS (1)
  1. LUCENTIS [Suspect]
     Indication: RETINAL VEIN THROMBOSIS
     Route: 050
     Dates: start: 201204

REACTIONS (4)
  - Diabetic coma [Recovering/Resolving]
  - Depression [Recovering/Resolving]
  - Retinal vascular thrombosis [Recovering/Resolving]
  - Visual impairment [Recovering/Resolving]
